FAERS Safety Report 9813913 (Version 1)
Quarter: 2014Q1

REPORT INFORMATION
  Report Type: Spontaneous
  Country: US (occurrence: US)
  Receive Date: 20140113
  Receipt Date: 20140113
  Transmission Date: 20141002
  Serious: Yes (Hospitalization, Other)
  Sender: FDA-Public Use
  Company Number: US-MERCK-1401USA003705

PATIENT
  Age: 54 Year
  Sex: Female

DRUGS (5)
  1. SAPHRIS [Suspect]
     Indication: SCHIZOPHRENIA
     Dosage: 10 MG, BID
     Route: 060
     Dates: start: 2012
  2. LAXENA [Concomitant]
  3. PRAVACOL [Concomitant]
  4. RISPERDAL [Concomitant]
  5. ZYPREXA [Concomitant]

REACTIONS (15)
  - Hypotension [Unknown]
  - Cardiac failure congestive [Unknown]
  - Local swelling [Unknown]
  - Pain in extremity [Unknown]
  - Renal failure [Recovered/Resolved]
  - Dehydration [Recovered/Resolved]
  - Heart valve incompetence [Unknown]
  - Aortic valve disease [Unknown]
  - Affect lability [Unknown]
  - Mania [Unknown]
  - Delusion [Unknown]
  - Depression [Unknown]
  - Selective mutism [Unknown]
  - Hallucination [Unknown]
  - Excessive eye blinking [Unknown]
